FAERS Safety Report 25113899 (Version 1)
Quarter: 2025Q1

REPORT INFORMATION
  Report Type: Other
  Country: US (occurrence: US)
  Receive Date: 20250324
  Receipt Date: 20250324
  Transmission Date: 20250408
  Serious: No
  Sender: TRAVERE THERAPEUTICS
  Company Number: US-TRAVERE-2025TVT00271

PATIENT
  Age: 38 Year
  Sex: Male

DRUGS (3)
  1. FILSPARI [Suspect]
     Active Substance: SPARSENTAN
     Indication: IgA nephropathy
     Route: 048
     Dates: start: 202411
  2. ZOLOFT [Concomitant]
     Active Substance: SERTRALINE HYDROCHLORIDE
  3. FEBUXOSTAT [Concomitant]
     Active Substance: FEBUXOSTAT

REACTIONS (5)
  - Cough [Unknown]
  - Nasal congestion [Unknown]
  - Headache [Unknown]
  - Ear discomfort [Unknown]
  - Cerumen impaction [Unknown]
